FAERS Safety Report 8982728 (Version 1)
Quarter: 2012Q4

REPORT INFORMATION
  Report Type: Report from Study
  Country: US (occurrence: US)
  Receive Date: 20121224
  Receipt Date: 20121224
  Transmission Date: 20130627
  Serious: Yes (Hospitalization, Other)
  Sender: FDA-Public Use
  Company Number: US-ROCHE-789445

PATIENT
  Sex: Female

DRUGS (2)
  1. TRASTUZUMAB [Suspect]
     Indication: BREAST CANCER
     Route: 042
     Dates: start: 201102, end: 20110624
  2. TRASTUZUMAB [Suspect]
     Route: 065
     Dates: start: 201211

REACTIONS (3)
  - Ejection fraction decreased [Unknown]
  - Dehydration [Unknown]
  - Cystitis [Unknown]
